FAERS Safety Report 4783939-7 (Version None)
Quarter: 2005Q3

REPORT INFORMATION
  Report Type: 
  Country: None (occurrence: None)
  Receive Date: 20050928
  Receipt Date: 20050914
  Transmission Date: 20060218
  Serious: Yes (Hospitalization, Disabling)
  Sender: FDA-Public Use
  Company Number: 02100-JPN-05-0426

PATIENT
  Age: 81 Year
  Sex: Male

DRUGS (4)
  1. CILOSTAZOL [Suspect]
     Dosage: ORAL
     Route: 048
     Dates: end: 20040910
  2. WARFARIN POTASSIUM [Suspect]
     Dosage: ORAL
     Route: 048
     Dates: start: 20040910, end: 20040918
  3. ASPIRIN [Suspect]
     Dates: end: 20040910
  4. ............. [Concomitant]

REACTIONS (9)
  - ATRIAL FIBRILLATION [None]
  - FEMORAL NECK FRACTURE [None]
  - HAEMORRHAGIC DIATHESIS [None]
  - INTERNATIONAL NORMALISED RATIO INCREASED [None]
  - MUSCLE HAEMORRHAGE [None]
  - PAIN [None]
  - PNEUMONIA [None]
  - PROTHROMBIN TIME PROLONGED [None]
  - SWELLING [None]
